FAERS Safety Report 7551351-3 (Version None)
Quarter: 2011Q2

REPORT INFORMATION
  Report Type: 
  Country: None (occurrence: None)
  Receive Date: 20110616
  Receipt Date: 20110609
  Transmission Date: 20111010
  Serious: Yes (Other)
  Sender: FDA-Public Use
  Company Number: GB-PFIZER INC-2011127317

PATIENT
  Sex: Female

DRUGS (1)
  1. PREMPAK [Suspect]
     Dosage: 0.625 MG / 5MG, UNK

REACTIONS (1)
  - NEOPLASM [None]
